FAERS Safety Report 5613639-2 (Version None)
Quarter: 2008Q1

REPORT INFORMATION
  Report Type: 
  Country: None (occurrence: None)
  Receive Date: 20080205
  Receipt Date: 20080116
  Transmission Date: 20080703
  Serious: Yes (Other)
  Sender: FDA-Public Use
  Company Number: US-JNJFOC-20071203078

PATIENT
  Sex: Female
  Weight: 89.81 kg

DRUGS (12)
  1. TRAMADOL HYDROCHLORIDE ER [Suspect]
     Route: 048
  2. TRAMADOL HYDROCHLORIDE ER [Suspect]
     Indication: OSTEOARTHRITIS
     Route: 048
  3. MELOXICAM [Suspect]
     Route: 048
  4. MELOXICAM [Suspect]
     Indication: OSTEOARTHRITIS
     Route: 048
  5. TRICOR [Concomitant]
  6. SYNTHROID [Concomitant]
  7. TOPROL-XL [Concomitant]
  8. CLARITIN [Concomitant]
  9. CLARINEX [Concomitant]
  10. ZANTAC [Concomitant]
  11. LISINOPRIL [Concomitant]
  12. FEXOFENADINE [Concomitant]

REACTIONS (5)
  - BLOOD CREATININE INCREASED [None]
  - HAEMATOCRIT DECREASED [None]
  - HAEMOGLOBIN DECREASED [None]
  - RED BLOOD CELL COUNT DECREASED [None]
  - WHITE BLOOD CELL COUNT DECREASED [None]
